FAERS Safety Report 4819263-3 (Version None)
Quarter: 2005Q4

REPORT INFORMATION
  Report Type: 
  Country: None (occurrence: None)
  Receive Date: 20051103
  Receipt Date: 20051024
  Transmission Date: 20060501
  Serious: Yes (Hospitalization, Other)
  Sender: FDA-Public Use
  Company Number: FR-BRISTOL-MYERS SQUIBB COMPANY-13158191

PATIENT
  Age: 46 Year
  Sex: Male
  Weight: 65 kg

DRUGS (7)
  1. TAXOL [Suspect]
     Indication: LUNG NEOPLASM MALIGNANT
     Route: 042
     Dates: start: 20050718, end: 20050718
  2. VIDEX [Suspect]
     Route: 048
     Dates: end: 20050725
  3. SUSTIVA [Suspect]
     Route: 048
     Dates: end: 20050725
  4. CARBOPLATIN FAULDING [Suspect]
     Indication: LUNG NEOPLASM MALIGNANT
     Route: 042
  5. NORVIR [Suspect]
     Dates: end: 20050725
  6. INVIRASE [Suspect]
     Indication: HIV TEST POSITIVE
     Dates: end: 20050725
  7. BACTRIM [Suspect]
     Dates: end: 20050725

REACTIONS (6)
  - ANAEMIA [None]
  - LEUKOPENIA [None]
  - NEUTROPENIA [None]
  - PYREXIA [None]
  - RENAL FAILURE [None]
  - THROMBOCYTOPENIA [None]
